FAERS Safety Report 4431390-1 (Version None)
Quarter: 2004Q3

REPORT INFORMATION
  Report Type: 
  Country: None (occurrence: None)
  Receive Date: 20040820
  Receipt Date: 20040820
  Transmission Date: 20050211
  Serious: Yes (Other)
  Sender: FDA-Public Use
  Company Number: None

PATIENT
  Sex: Male
  Weight: 59.4212 kg

DRUGS (3)
  1. AMIFOSTINE [Suspect]
     Indication: APTYALISM
     Dosage: 500 MG SQ DAILY M-F [8 DOSES GIVEN]
     Route: 058
  2. COMPAZINE [Concomitant]
  3. REGLAN [Concomitant]

REACTIONS (2)
  - RASH [None]
  - SKIN REACTION [None]
